FAERS Safety Report 4425282-1 (Version None)
Quarter: 2004Q3

REPORT INFORMATION
  Report Type: 
  Country: None (occurrence: None)
  Receive Date: 20040809
  Receipt Date: 20040726
  Transmission Date: 20050211
  Serious: Yes (Other)
  Sender: FDA-Public Use
  Company Number: US-JNJFOC-20040800083

PATIENT
  Age: 3 Year
  Sex: Male

DRUGS (2)
  1. TYLENOL [Suspect]
     Indication: PYREXIA
     Dates: start: 20030901
  2. MOTRIN [Suspect]
     Indication: PYREXIA
     Dates: start: 20030901

REACTIONS (6)
  - CONVULSION [None]
  - DRUG HYPERSENSITIVITY [None]
  - EYE SWELLING [None]
  - OEDEMA MOUTH [None]
  - PHARYNGITIS [None]
  - SWELLING [None]
